FAERS Safety Report 11840287 (Version 1)
Quarter: 2015Q4

REPORT INFORMATION
  Report Type: Spontaneous
  Country: DE (occurrence: DE)
  Receive Date: 20151216
  Receipt Date: 20151216
  Transmission Date: 20160305
  Serious: Yes (Other)
  Sender: FDA-Public Use
  Company Number: DE-PFIZER INC-2015390590

PATIENT
  Age: 79 Year
  Sex: Male
  Weight: 85 kg

DRUGS (1)
  1. HALCION [Suspect]
     Active Substance: TRIAZOLAM
     Dosage: 1/3 TABLET=0.125 MG OR 1/4 TABLET 3-4X/WEEK
     Dates: start: 1990

REACTIONS (4)
  - Hypertension [Not Recovered/Not Resolved]
  - Blood creatinine increased [Unknown]
  - Polyneuropathy [Not Recovered/Not Resolved]
  - Incorrect drug administration duration [Unknown]

NARRATIVE: CASE EVENT DATE: 1992
